FAERS Safety Report 8781001 (Version 1)
Quarter: 2012Q4

REPORT INFORMATION
  Report Type: 
  Country: US (occurrence: US)
  Receive Date: 20120913
  Receipt Date: 20120913
  Transmission Date: 20130627
  Serious: No
  Sender: FDA-Public Use
  Company Number: US-009507513-1209USA000123

PATIENT

DRUGS (1)
  1. AZASITE [Suspect]
     Indication: BLEPHARITIS
     Dosage: 2 gtt, hs
     Route: 047
     Dates: start: 20120731

REACTIONS (4)
  - Incorrect drug administration duration [Unknown]
  - Product packaging quantity issue [Unknown]
  - Product container issue [Unknown]
  - No adverse event [Unknown]
